FAERS Safety Report 6048540-6 (Version None)
Quarter: 2009Q1

REPORT INFORMATION
  Report Type: 
  Country: None (occurrence: None)
  Receive Date: 20090123
  Receipt Date: 20090116
  Transmission Date: 20090719
  Serious: Yes (Other)
  Sender: FDA-Public Use
  Company Number: JP-ASTRAZENECA-2009SE00243

PATIENT
  Age: 71 Year
  Sex: Female
  Weight: 63 kg

DRUGS (2)
  1. AMIAS [Suspect]
     Route: 048
     Dates: start: 20050301, end: 20090104
  2. PULMICORT-100 [Concomitant]
     Indication: ASTHMA
     Route: 055
     Dates: start: 20010101

REACTIONS (4)
  - DYSPHONIA [None]
  - LIP SWELLING [None]
  - SWELLING FACE [None]
  - SWOLLEN TONGUE [None]
